FAERS Safety Report 5893620-9 (Version None)
Quarter: 2008Q3

REPORT INFORMATION
  Report Type: 
  Country: None (occurrence: None)
  Receive Date: 20080923
  Receipt Date: 20070920
  Transmission Date: 20090109
  Serious: No
  Sender: FDA-Public Use
  Company Number: US-ASTRAZENECA-2007UW22184

PATIENT
  Sex: Female

DRUGS (2)
  1. SEROQUEL [Suspect]
     Indication: BIPOLAR DISORDER
     Route: 048
  2. SEROQUEL [Suspect]
     Route: 048
     Dates: start: 20070901

REACTIONS (7)
  - DECREASED APPETITE [None]
  - DYSKINESIA [None]
  - FEELING ABNORMAL [None]
  - PERSONALITY DISORDER [None]
  - RESTLESS LEGS SYNDROME [None]
  - SOMNOLENCE [None]
  - WEIGHT DECREASED [None]
